FAERS Safety Report 11581758 (Version 1)
Quarter: 2015Q4

REPORT INFORMATION
  Report Type: Spontaneous
  Country: US (occurrence: US)
  Receive Date: 20151001
  Receipt Date: 20151001
  Transmission Date: 20160304
  Serious: No
  Sender: FDA-Public Use
  Company Number: US-ROCHE-656355

PATIENT
  Age: 58 Year
  Sex: Male

DRUGS (2)
  1. PEGASYS [Suspect]
     Active Substance: PEGINTERFERON ALFA-2A
     Indication: HEPATITIS C
     Dosage: FORMULATION: PRE-FILLED SYRINGE
     Route: 065
  2. COPEGUS [Suspect]
     Active Substance: RIBAVIRIN
     Indication: HEPATITIS C
     Dosage: DIVIDED DOSES
     Route: 065

REACTIONS (10)
  - Sneezing [Unknown]
  - White blood cell count decreased [Unknown]
  - Chills [Not Recovered/Not Resolved]
  - Red blood cell count decreased [Unknown]
  - Cough [Unknown]
  - Ill-defined disorder [Unknown]
  - Pyrexia [Not Recovered/Not Resolved]
  - Nasopharyngitis [Unknown]
  - Insomnia [Not Recovered/Not Resolved]
  - Productive cough [Not Recovered/Not Resolved]

NARRATIVE: CASE EVENT DATE: 20091202
